FAERS Safety Report 5060179-8 (Version None)
Quarter: 2006Q3

REPORT INFORMATION
  Report Type: 
  Country: None (occurrence: None)
  Receive Date: 20060719
  Receipt Date: 20060710
  Transmission Date: 20061208
  Serious: Yes (Hospitalization, Other)
  Sender: FDA-Public Use
  Company Number: 2006-07-0402

PATIENT
  Age: 67 Year
  Sex: Male
  Weight: 72 kg

DRUGS (9)
  1. INTRON A [Suspect]
     Indication: HEPATITIS C
     Dosage: 6 MIU QD INTRAMUSCULAR
     Route: 030
     Dates: start: 20040430, end: 20040513
  2. REBETOL [Suspect]
     Indication: HEPATITIS C
     Dosage: 800 MG ORAL
     Route: 048
     Dates: start: 20040430, end: 20040513
  3. POLARAMINE [Concomitant]
  4. URSO [Concomitant]
  5. FLUITRAN [Concomitant]
  6. DIGOSIN [Concomitant]
  7. DASEN [Concomitant]
  8. MUCOSOLVAN [Concomitant]
  9. SELBEX [Concomitant]

REACTIONS (6)
  - ANOREXIA [None]
  - CEREBELLAR INFARCTION [None]
  - DIZZINESS [None]
  - NAUSEA [None]
  - PYREXIA [None]
  - VISUAL DISTURBANCE [None]
